FAERS Safety Report 21010345 (Version 3)
Quarter: 2023Q4

REPORT INFORMATION
  Report Type: Report from Study
  Country: US (occurrence: US)
  Receive Date: 20220627
  Receipt Date: 20231128
  Transmission Date: 20240110
  Serious: Yes (Hospitalization)
  Sender: FDA-Public Use
  Company Number: US-XERIS PHARMACEUTICALS-2022XER00208

PATIENT
  Sex: Female
  Weight: 77.551 kg

DRUGS (9)
  1. RECORLEV [Suspect]
     Active Substance: LEVOKETOCONAZOLE
     Indication: Cushing^s syndrome
     Dosage: ONE TABLET (150 MG), 2X/DAY
     Route: 048
     Dates: start: 20220506
  2. RECORLEV [Suspect]
     Active Substance: LEVOKETOCONAZOLE
     Dosage: 2 TABLETS (300 MG), 2X/DAY
     Route: 048
  3. LEVOTHYROXINE [Concomitant]
     Active Substance: LEVOTHYROXINE
  4. NORTRIPTYLINE [Concomitant]
     Active Substance: NORTRIPTYLINE
  5. DULOXETINE [Concomitant]
     Active Substance: DULOXETINE
  6. WELLBUTRIN [Concomitant]
     Active Substance: BUPROPION HYDROCHLORIDE
  7. SPRINTEC [Concomitant]
     Active Substance: ETHINYL ESTRADIOL\NORGESTIMATE
  8. ROPINIROLE [Concomitant]
     Active Substance: ROPINIROLE
  9. VITAMIN B1 SUPPLEMENT [Concomitant]

REACTIONS (9)
  - Pulmonary embolism [Recovering/Resolving]
  - Abnormal dreams [Not Recovered/Not Resolved]
  - Stress [Unknown]
  - Mental fatigue [Not Recovered/Not Resolved]
  - Antisocial behaviour [Unknown]
  - Feeling abnormal [Unknown]
  - Weight decreased [Recovered/Resolved]
  - Weight increased [Unknown]
  - Decreased appetite [Not Recovered/Not Resolved]

NARRATIVE: CASE EVENT DATE: 20220101
